FAERS Safety Report 18606965 (Version 5)
Quarter: 2021Q4

REPORT INFORMATION
  Report Type: Spontaneous
  Country: US (occurrence: US)
  Receive Date: 20201211
  Receipt Date: 20211115
  Transmission Date: 20220304
  Serious: Yes (Other)
  Sender: FDA-Public Use
  Company Number: US-PFIZER INC-2020488289

PATIENT
  Age: 66 Year

DRUGS (3)
  1. EFFEXOR XR [Suspect]
     Active Substance: VENLAFAXINE HYDROCHLORIDE
     Dosage: 150 MG, UNK
  2. EFFEXOR XR [Suspect]
     Active Substance: VENLAFAXINE HYDROCHLORIDE
     Dosage: 187.5 MG
  3. EFFEXOR XR [Suspect]
     Active Substance: VENLAFAXINE HYDROCHLORIDE
     Dosage: 150 MG, DAILY; (QUANTITY 90 AND, 1 DAILY)
     Route: 048

REACTIONS (5)
  - Blindness [Unknown]
  - Drug withdrawal syndrome [Unknown]
  - Cerebral disorder [Unknown]
  - Illness [Unknown]
  - Nausea [Unknown]
